FAERS Safety Report 7506403-0 (Version None)
Quarter: 2011Q2

REPORT INFORMATION
  Report Type: 
  Country: None (occurrence: None)
  Receive Date: 20110526
  Receipt Date: 20110523
  Transmission Date: 20111010
  Serious: Yes (Death, Hospitalization)
  Sender: FDA-Public Use
  Company Number: BR-ELI_LILLY_AND_COMPANY-BR201103006945

PATIENT
  Sex: Female
  Weight: 63.7 kg

DRUGS (7)
  1. DIAZEPAM [Concomitant]
     Indication: AGITATION
     Dosage: UNK, UNKNOWN
     Route: 065
     Dates: start: 20100825
  2. NORIPURUM [Concomitant]
     Dosage: UNK, UNKNOWN
     Route: 065
     Dates: start: 20110216
  3. VINFLUNINE [Suspect]
     Indication: BREAST CANCER METASTATIC
     Dosage: 320 MG/M2, OTHER
     Route: 042
     Dates: start: 20100622, end: 20110216
  4. GEMCITABINE HYDROCHLORIDE [Suspect]
     Indication: BREAST CANCER METASTATIC
     Dosage: 1000 MG/M2, OTHER
     Route: 042
     Dates: start: 20100622, end: 20110223
  5. OMEPRAZOLE [Concomitant]
     Indication: PROPHYLAXIS
     Dosage: UNK, UNKNOWN
     Route: 065
     Dates: start: 20100915
  6. METFORMIN HCL [Concomitant]
     Dosage: UNK, UNKNOWN
     Dates: start: 20101019
  7. CAPTOPRIL [Concomitant]
     Dosage: UNK, UNKNOWN
     Route: 065
     Dates: start: 20100805

REACTIONS (4)
  - SEPSIS [None]
  - PNEUMONIA [None]
  - MULTI-ORGAN FAILURE [None]
  - NEUTROPENIA [None]
